FAERS Safety Report 8154419-6 (Version None)
Quarter: 2012Q1

REPORT INFORMATION
  Report Type: 
  Country: None (occurrence: None)
  Receive Date: 20120103
  Receipt Date: 20110830
  Transmission Date: 20120608
  Serious: No
  Sender: FDA-Public Use
  Company Number: AE-2011-00956

PATIENT
  Age: 53 Year
  Sex: Male
  Weight: 76.2043 kg

DRUGS (6)
  1. SERTRALINE HYDROCHLORIDE [Concomitant]
  2. PEG-INTRON [Concomitant]
  3. TOPROL-XL [Concomitant]
  4. INCIVEK [Suspect]
     Dosage: 2250 MG (750 MG, 3 IN 1 D), ORAL
     Route: 048
     Dates: start: 20110814
  5. OMEPRAZOLE [Concomitant]
  6. RIBAVIRIN ZYDUS (RIBAVIRIN) [Concomitant]

REACTIONS (2)
  - DIARRHOEA [None]
  - HAEMORRHOIDS [None]
